FAERS Safety Report 14239943 (Version 1)
Quarter: 2017Q4

REPORT INFORMATION
  Report Type: Spontaneous
  Country: US (occurrence: US)
  Receive Date: 20171130
  Receipt Date: 20171130
  Transmission Date: 20180321
  Serious: No
  Sender: FDA-Public Use
  Company Number: US-ASTRAZENECA-2017SF21443

PATIENT
  Sex: Female
  Weight: 106.6 kg

DRUGS (2)
  1. BYDUREON [Suspect]
     Active Substance: EXENATIDE
     Indication: TYPE 2 DIABETES MELLITUS
     Route: 058
  2. HUMALOG INSULIN 5050 [Concomitant]
     Indication: DIABETES MELLITUS
     Dosage: 2-3 TIMES DAILY BASED ON HER BLOOD SUGARS
     Route: 058

REACTIONS (1)
  - Wrong technique in product usage process [Recovered/Resolved]
